FAERS Safety Report 6115243-9 (Version None)
Quarter: 2009Q1

REPORT INFORMATION
  Report Type: 
  Country: None (occurrence: None)
  Receive Date: 20090313
  Receipt Date: 20090305
  Transmission Date: 20090719
  Serious: Yes (Death, Hospitalization, Other)
  Sender: FDA-Public Use
  Company Number: US-MERCK-0902USA03918

PATIENT
  Age: 79 Year
  Sex: Male

DRUGS (11)
  1. ZETIA [Suspect]
     Route: 048
     Dates: start: 20050801, end: 20090101
  2. CRESTOR [Concomitant]
     Route: 065
     Dates: start: 20070702, end: 20070723
  3. CRESTOR [Concomitant]
     Route: 065
     Dates: start: 20070925, end: 20090101
  4. LIPITOR [Concomitant]
     Route: 065
     Dates: start: 20050630, end: 20070621
  5. LISINOPRIL [Concomitant]
     Route: 048
  6. COREG [Concomitant]
     Route: 065
  7. GLYBURIDE [Concomitant]
     Route: 065
  8. PREDNISONE [Concomitant]
     Route: 065
  9. ISOSORBIDE [Concomitant]
     Route: 065
  10. ASPIRIN [Concomitant]
     Route: 065
  11. LASIX [Concomitant]
     Route: 065

REACTIONS (6)
  - ADVERSE EVENT [None]
  - BACK PAIN [None]
  - DEATH [None]
  - LUNG CANCER METASTATIC [None]
  - MYALGIA [None]
  - PNEUMONIA [None]
